FAERS Safety Report 10991773 (Version 1)
Quarter: 2015Q2

REPORT INFORMATION
  Report Type: Spontaneous
  Country: IT (occurrence: IT)
  Receive Date: 20150406
  Receipt Date: 20150406
  Transmission Date: 20150821
  Serious: Yes (Hospitalization)
  Sender: FDA-Public Use
  Company Number: PHHY2015IT039021

PATIENT
  Age: 83 Year
  Sex: Male

DRUGS (1)
  1. ACETYLSALICYLIC ACID [Suspect]
     Active Substance: ASPIRIN
     Indication: THROMBOSIS PROPHYLAXIS
     Dosage: 1 DF, QD
     Route: 048

REACTIONS (4)
  - Cerebral haemorrhage [Unknown]
  - Salivary hypersecretion [Unknown]
  - Hyperhidrosis [Unknown]
  - Monoplegia [Unknown]

NARRATIVE: CASE EVENT DATE: 20150301
